FAERS Safety Report 17054472 (Version 1)
Quarter: 2019Q4

REPORT INFORMATION
  Report Type: Report from Study
  Country: US (occurrence: US)
  Receive Date: 20191120
  Receipt Date: 20191120
  Transmission Date: 20200122
  Serious: Yes (Other)
  Sender: FDA-Public Use
  Company Number: US-OTSUKA-2019_038712

PATIENT
  Age: 71 Year
  Sex: Male

DRUGS (1)
  1. DEXTROMETHORPHAN/QUINIDINE [Suspect]
     Active Substance: DEXTROMETHORPHAN HYDROBROMIDE\QUINIDINE SULFATE
     Indication: AFFECT LABILITY
     Dosage: 1 DF, BID ( CAPSULE TWICE DAILY)
     Route: 048

REACTIONS (12)
  - Dementia [Unknown]
  - Pneumothorax traumatic [Unknown]
  - Cognitive linguistic deficit [Unknown]
  - Fall [Unknown]
  - Hemiplegia [Unknown]
  - Cerebrovascular disorder [Unknown]
  - Major depression [Unknown]
  - Aphasia [Unknown]
  - Anxiety disorder [Unknown]
  - Eyelid injury [Unknown]
  - Rib fracture [Unknown]
  - Mobility decreased [Unknown]

NARRATIVE: CASE EVENT DATE: 20180305
